FAERS Safety Report 14759161 (Version 3)
Quarter: 2018Q3

REPORT INFORMATION
  Report Type: Report from Study
  Country: IT (occurrence: IT)
  Receive Date: 20180413
  Receipt Date: 20180806
  Transmission Date: 20181010
  Serious: Yes (Hospitalization)
  Sender: FDA-Public Use
  Company Number: IT-MYLANLABS-2018M1022996

PATIENT
  Age: 78 Year
  Sex: Male
  Weight: 70 kg

DRUGS (29)
  1. OXYCONTIN [Suspect]
     Active Substance: OXYCODONE HYDROCHLORIDE
     Indication: PAIN IN EXTREMITY
     Dosage: 20 MG, QD
     Route: 048
     Dates: start: 20170803
  2. OXYCONTIN [Suspect]
     Active Substance: OXYCODONE HYDROCHLORIDE
     Indication: ARTHRALGIA
  3. ORAMORPH [Concomitant]
     Active Substance: MORPHINE SULFATE
     Indication: ARTHRALGIA
  4. DELTACORTENE [Concomitant]
     Active Substance: PREDNISONE
     Indication: PAIN IN EXTREMITY
  5. OXYCODONE HYDROCHLORIDE. [Suspect]
     Active Substance: OXYCODONE HYDROCHLORIDE
     Indication: PAIN IN EXTREMITY
     Dosage: 20 MG, DAILY
     Route: 048
     Dates: start: 20170803
  6. ENANTONE LP [Concomitant]
     Active Substance: LEUPROLIDE ACETATE
     Indication: PROSTATE CANCER
     Dosage: DOSAGE FORM: UNSPECIFIED
     Route: 065
  7. ZOMETA [Concomitant]
     Active Substance: ZOLEDRONIC ACID
     Indication: PRODUCT USED FOR UNKNOWN INDICATION
     Dosage: UNK
     Dates: start: 20111108, end: 20170727
  8. PREDNISONE. [Suspect]
     Active Substance: PREDNISONE
     Indication: PROSTATE CANCER
     Dosage: DOSAGE FORM: UNSPECIFIED
     Route: 065
  9. ABIRATERONE [Suspect]
     Active Substance: ABIRATERONE
     Indication: PROSTATE CANCER
     Dosage: 1000 MG, DAILY
     Route: 048
     Dates: start: 20151020, end: 20171107
  10. MATRIFEN [Suspect]
     Active Substance: FENTANYL
     Indication: ARTHRALGIA
     Dosage: 50 MCG/HR EVERY THREE DAYS, Q3D
     Route: 062
     Dates: start: 20170726
  11. ENZALUTAMIDE [Suspect]
     Active Substance: ENZALUTAMIDE
     Indication: PROSTATE CANCER
     Dosage: 160 MG, QD
     Route: 048
     Dates: start: 20140603, end: 20171107
  12. DELTACORTENE [Concomitant]
     Active Substance: PREDNISONE
     Indication: ARTHRALGIA
  13. PREDNISONE. [Suspect]
     Active Substance: PREDNISONE
     Indication: PROSTATE CANCER
     Dosage: 10 MG, QD
     Route: 048
     Dates: start: 20151020, end: 20171107
  14. OXYCONTIN [Suspect]
     Active Substance: OXYCODONE HYDROCHLORIDE
     Indication: ARTHRALGIA
     Dosage: 10 MG, QD
     Route: 048
     Dates: start: 20170803
  15. ORAMORPH [Concomitant]
     Active Substance: MORPHINE SULFATE
     Indication: PAIN IN EXTREMITY
     Dosage: DOSAGE FORM: UNSPECIFIED
     Route: 065
  16. FENTANYL CITRATE. [Concomitant]
     Active Substance: FENTANYL CITRATE
     Indication: PRODUCT USED FOR UNKNOWN INDICATION
     Dosage: 50 MCG/HR,UNK
     Route: 065
  17. DELTACORTENE [Concomitant]
     Active Substance: PREDNISONE
     Indication: PROSTATE CANCER
     Dosage: DOSAGE FORM: UNSPECIFIED
     Route: 065
  18. TACHIPIRINA [Concomitant]
     Active Substance: ACETAMINOPHEN
     Indication: PRODUCT USED FOR UNKNOWN INDICATION
     Route: 065
  19. SOLDESAM [Concomitant]
     Active Substance: DEXAMETHASONE
     Indication: PAIN IN EXTREMITY
     Dosage: DOSAGE FORM: UNSPECIFIED
     Route: 065
  20. VELLOFENT [Concomitant]
     Indication: PAIN IN EXTREMITY
     Dosage: DOSAGE FORM: UNSPECIFIED
     Route: 065
  21. CALCIUM SANDOZ                     /00060701/ [Concomitant]
     Active Substance: CALCIUM GLUCONATE
     Indication: PRODUCT USED FOR UNKNOWN INDICATION
     Dosage: UNK
     Route: 065
     Dates: start: 20170823, end: 20170919
  22. PREDNISONE. [Suspect]
     Active Substance: PREDNISONE
     Dosage: 10 MG, QD
     Route: 048
     Dates: start: 20151020, end: 20171107
  23. SOLDESAM [Concomitant]
     Active Substance: DEXAMETHASONE
     Indication: ARTHRALGIA
  24. DEXAMETHASONE. [Concomitant]
     Active Substance: DEXAMETHASONE
     Indication: PRODUCT USED FOR UNKNOWN INDICATION
     Dosage: UNK
     Dates: start: 20170912, end: 20170920
  25. MATRIFEN [Suspect]
     Active Substance: FENTANYL
     Indication: ARTHRALGIA
     Dosage: UNK UNK, Q3D
     Route: 062
     Dates: start: 20170726
  26. MATRIFEN [Suspect]
     Active Substance: FENTANYL
     Indication: PAIN IN EXTREMITY
  27. MATRIFEN [Suspect]
     Active Substance: FENTANYL
     Indication: PAIN IN EXTREMITY
  28. OXYCODONE HYDROCHLORIDE. [Suspect]
     Active Substance: OXYCODONE HYDROCHLORIDE
     Indication: ARTHRALGIA
  29. LYRICA [Concomitant]
     Active Substance: PREGABALIN
     Indication: PAIN IN EXTREMITY
     Dosage: DOSAGE FORM: UNKNOWN
     Route: 065

REACTIONS (2)
  - Decreased appetite [Recovered/Resolved]
  - Pain in extremity [Recovered/Resolved]

NARRATIVE: CASE EVENT DATE: 20171007
